FAERS Safety Report 4831895-5 (Version None)
Quarter: 2005Q4

REPORT INFORMATION
  Report Type: 
  Country: None (occurrence: None)
  Receive Date: 20051116
  Receipt Date: 20051103
  Transmission Date: 20060501
  Serious: Yes (Hospitalization)
  Sender: FDA-Public Use
  Company Number: 2005RR-01067

PATIENT
  Age: 43 Year
  Sex: Male

DRUGS (8)
  1. FLUOXETINE [Suspect]
     Dosage: 600 MG, ORAL
     Route: 048
  2. AMLODIPINE [Suspect]
     Dosage: 560 MG, ORAL
     Route: 048
  3. CITALOPRAM (CITALOPRAM) [Suspect]
     Dosage: 280 MG, ORAL
     Route: 048
  4. PERINDOPRIL (PERINDOPRIL) [Suspect]
     Dosage: 120 MG, ORAL
     Route: 048
  5. FOLIC ACID [Suspect]
     Dosage: ORAL
     Route: 048
  6. ASPIRIN [Suspect]
     Dosage: 7.5 G, ORAL
     Route: 048
  7. PARACETAMOL (PARACETAMOL) [Suspect]
     Dosage: 16 G, ORAL
     Route: 048
  8. ETHANOL (ALCOHOL) [Suspect]

REACTIONS (10)
  - ALCOHOL USE [None]
  - BLOOD POTASSIUM ABNORMAL [None]
  - DEPRESSED LEVEL OF CONSCIOUSNESS [None]
  - FALL [None]
  - HAEMODYNAMIC INSTABILITY [None]
  - HYPOTENSION [None]
  - INTENTIONAL OVERDOSE [None]
  - METABOLIC ACIDOSIS [None]
  - THERAPY NON-RESPONDER [None]
  - URINE OUTPUT DECREASED [None]
